FAERS Safety Report 5852087-7 (Version None)
Quarter: 2008Q3

REPORT INFORMATION
  Report Type: 
  Country: None (occurrence: None)
  Receive Date: 20080819
  Receipt Date: 20080805
  Transmission Date: 20090109
  Serious: Yes (Other)
  Sender: FDA-Public Use
  Company Number: 1022556-2008-00600

PATIENT
  Age: 1 Year
  Sex: Male
  Weight: 12.2471 kg

DRUGS (1)
  1. BULLFROG MOSQUITO COAST SPF 30 [Suspect]
     Indication: PROPHYLAXIS AGAINST SOLAR RADIATION
     Dosage: 1X, TOPICAL
     Route: 061

REACTIONS (4)
  - DRUG HYPERSENSITIVITY [None]
  - EYE SWELLING [None]
  - PERIORBITAL HAEMATOMA [None]
  - SWELLING [None]
